FAERS Safety Report 18010903 (Version 1)
Quarter: 2020Q3

REPORT INFORMATION
  Report Type: Spontaneous
  Country: US (occurrence: US)
  Receive Date: 20200710
  Receipt Date: 20200710
  Transmission Date: 20201103
  Serious: No
  Sender: FDA-Public Use
  Company Number: US-009507513-2006USA011014

PATIENT
  Sex: Female
  Weight: 58.96 kg

DRUGS (5)
  1. NUVARING [Suspect]
     Active Substance: ETHINYL ESTRADIOL\ETONOGESTREL
     Dosage: CYCLE OF^21 DAYS ON, 7 DAYS OFF^
     Route: 067
     Dates: start: 20200617
  2. ETONOGESTREL (+) ETHINYL ESTRADIOL [Suspect]
     Active Substance: ETHINYL ESTRADIOL\ETONOGESTREL
     Indication: CONTRACEPTION
     Dosage: DELIVERS .120 MG/.015 MG PER DAY^, ^CYCLE OF21 DAYS ON, 7 DAYS OFF
     Route: 067
     Dates: start: 202001, end: 20200617
  3. FLUCONAZOLE. [Concomitant]
     Active Substance: FLUCONAZOLE
  4. NUVARING [Suspect]
     Active Substance: ETHINYL ESTRADIOL\ETONOGESTREL
     Indication: CONTRACEPTION
     Dosage: CYCLE OF^21 DAYS ON, 7 DAYS OFF^
     Route: 067
     Dates: start: 2013, end: 201803
  5. NUVARING [Suspect]
     Active Substance: ETHINYL ESTRADIOL\ETONOGESTREL
     Dosage: CYCLE OF^21 DAYS ON, 7 DAYS OFF^
     Route: 067
     Dates: start: 201902, end: 202001

REACTIONS (9)
  - Emotional disorder [Recovered/Resolved]
  - Abnormal behaviour [Recovered/Resolved]
  - Medical device site discomfort [Recovered/Resolved]
  - Product substitution issue [Unknown]
  - Apathy [Recovered/Resolved]
  - Ill-defined disorder [Recovered/Resolved]
  - Product physical issue [Unknown]
  - Feeling abnormal [Recovered/Resolved]
  - Therapeutic response unexpected [Unknown]

NARRATIVE: CASE EVENT DATE: 2013
